FAERS Safety Report 4861332-6 (Version None)
Quarter: 2005Q4

REPORT INFORMATION
  Report Type: 
  Country: None (occurrence: None)
  Receive Date: 20051216
  Receipt Date: 20051208
  Transmission Date: 20060501
  Serious: Yes (Hospitalization)
  Sender: FDA-Public Use
  Company Number: OMPQ-NO-0512S-1492

PATIENT
  Age: 61 Year
  Sex: Male

DRUGS (1)
  1. OMNIPAQUE 140 [Suspect]
     Indication: INTRACRANIAL ANEURYSM
     Dosage: 100 ML, SINGLE DOSE, I.A.; SINGLE DOSE
     Route: 013

REACTIONS (2)
  - INTERSTITIAL LUNG DISEASE [None]
  - PULMONARY OEDEMA [None]
